FAERS Safety Report 20297826 (Version 1)
Quarter: 2022Q1

REPORT INFORMATION
  Report Type: Spontaneous
  Country: US (occurrence: None)
  Receive Date: 20220105
  Receipt Date: 20220105
  Transmission Date: 20220423
  Serious: No
  Sender: FDA-Public Use
  Company Number: 2021A889684

PATIENT
  Sex: Male
  Weight: 90.7 kg

DRUGS (1)
  1. SYMBICORT [Suspect]
     Active Substance: BUDESONIDE\FORMOTEROL FUMARATE DIHYDRATE
     Indication: Chronic obstructive pulmonary disease
     Dosage: 160/4.5 MCG ,UNKNOWN FREQUENCY UNKNOWN
     Route: 055

REACTIONS (6)
  - Dyspnoea [Unknown]
  - Device use confusion [Unknown]
  - Wrong technique in device usage process [Unknown]
  - Device use issue [Unknown]
  - Extra dose administered [Unknown]
  - Device ineffective [Unknown]
